FAERS Safety Report 11496460 (Version 2)
Quarter: 2015Q3

REPORT INFORMATION
  Report Type: Spontaneous
  Country: DE (occurrence: DE)
  Receive Date: 20150911
  Receipt Date: 20150924
  Transmission Date: 20151125
  Serious: Yes (Hospitalization)
  Sender: FDA-Public Use
  Company Number: DE-AMGEN-DEUSP2015092447

PATIENT
  Sex: Male

DRUGS (10)
  1. RITUXIMAB [Suspect]
     Active Substance: RITUXIMAB
     Indication: B-CELL LYMPHOMA
     Dosage: 720 MG, 1 TIMES IN 2 WEEKS FOR 1 DAY
     Route: 042
     Dates: start: 20150817, end: 20150817
  2. VINCRISTINE [Suspect]
     Active Substance: VINCRISTINE
     Indication: B-CELL LYMPHOMA
     Dosage: 3.84 MG, 1 TIMES IN 2 WEEKS FOR 1 DAY
     Route: 042
     Dates: start: 20150818, end: 20150818
  3. CYCLOPHOSPHAMIDE. [Suspect]
     Active Substance: CYCLOPHOSPHAMIDE
     Indication: B-CELL LYMPHOMA
     Dosage: 1440 MG, 1 TIMES IN 2 WEEKS FOR 1 DAY(S)
     Route: 042
     Dates: start: 20150818, end: 20150818
  4. PREDNISOLONE. [Suspect]
     Active Substance: PREDNISOLONE
     Indication: B-CELL LYMPHOMA
     Dosage: 100 MG, 1 TIMES A DAY(S) FOR 5 DAYS
     Route: 048
     Dates: start: 20150818, end: 20150822
  5. ENOXAPARIN SODIUM. [Concomitant]
     Active Substance: ENOXAPARIN SODIUM
     Indication: PROPHYLAXIS
     Dosage: 0.4 ML, 1 TIMES A DAY(S)
     Route: 058
  6. PEGFILGRASTIM [Suspect]
     Active Substance: PEGFILGRASTIM
     Indication: B-CELL LYMPHOMA
     Dosage: 6 MCG, 4 DAY OF CHEMOTHERAPY FOR 1 DAY
     Route: 058
     Dates: start: 20150821, end: 20150821
  7. ACICLOVIR [Concomitant]
     Active Substance: ACYCLOVIR
     Indication: INFECTION
     Dosage: 400 MG, 2 TIMES A DAY(S)
     Route: 048
  8. PANTOPRAZOLE SODIUM. [Concomitant]
     Active Substance: PANTOPRAZOLE SODIUM
     Indication: DYSPEPSIA
     Dosage: 20 MG, 2 TIMES A DAY(S)
     Route: 048
  9. BISOPROLOL [Concomitant]
     Active Substance: BISOPROLOL
     Indication: PRURITUS
     Dosage: 2.5 MG, 2 TIMES A DAY(S)
     Route: 048
  10. DOXORUBICIN [Suspect]
     Active Substance: DOXORUBICIN
     Indication: B-CELL LYMPHOMA
     Dosage: 96 MG, 1 TIMES IN 2 WEEK FOR 1 DAY
     Route: 042
     Dates: start: 20150818, end: 20150818

REACTIONS (1)
  - Pyrexia [Recovered/Resolved]

NARRATIVE: CASE EVENT DATE: 20150829
